FAERS Safety Report 6384485-X (Version None)
Quarter: 2009Q4

REPORT INFORMATION
  Report Type: 
  Country: None (occurrence: None)
  Receive Date: 20091001
  Receipt Date: 20090929
  Transmission Date: 20100525
  Serious: Yes (Hospitalization)
  Sender: FDA-Public Use
  Company Number: US-PURDUE-USA-2009-0040282

PATIENT
  Age: 82 Year
  Sex: Female

DRUGS (1)
  1. RYZOLT [Suspect]
     Indication: DRUG USE FOR UNKNOWN INDICATION

REACTIONS (3)
  - CONFUSIONAL STATE [None]
  - DIZZINESS [None]
  - PSYCHOTIC DISORDER [None]
